FAERS Safety Report 15759697 (Version 2)
Quarter: 2018Q4

REPORT INFORMATION
  Report Type: Spontaneous
  Country: US (occurrence: US)
  Receive Date: 20181226
  Receipt Date: 20181231
  Transmission Date: 20190205
  Serious: Yes (Disabling)
  Sender: FDA-Public Use
  Company Number: US-AUROBINDO-AUR-APL-2018-060504

PATIENT

DRUGS (1)
  1. SERTRALINE [Suspect]
     Active Substance: SERTRALINE HYDROCHLORIDE
     Indication: PRODUCT USED FOR UNKNOWN INDICATION
     Dosage: UNK
     Route: 065

REACTIONS (12)
  - Autonomic nervous system imbalance [Recovering/Resolving]
  - Tremor [Recovering/Resolving]
  - Postural orthostatic tachycardia syndrome [Unknown]
  - Asthenia [Unknown]
  - Product substitution issue [Unknown]
  - Bedridden [Unknown]
  - Hot flush [Recovering/Resolving]
  - Muscle twitching [Recovering/Resolving]
  - Ill-defined disorder [Recovering/Resolving]
  - Heart rate increased [Recovering/Resolving]
  - Sinus tachycardia [Recovering/Resolving]
  - Impaired work ability [Unknown]
